FAERS Safety Report 9345443 (Version 1)
Quarter: 2020Q3

REPORT INFORMATION
  Report Type: Report from Study
  Country: FR (occurrence: FR)
  Receive Date: 20130613
  Receipt Date: 20130613
  Transmission Date: 20201104
  Serious: Yes (Death)
  Sender: FDA-Public Use
  Company Number: FR-ROCHE-1234448

PATIENT
  Age: 41 Year
  Sex: Female
  Weight: 60 kg

DRUGS (8)
  1. PACLITAXEL. [Suspect]
     Active Substance: PACLITAXEL
     Indication: BREAST CANCER METASTATIC
     Dosage: LAST DOSE PRIOR TO SAE: 13/SEP/2012
     Route: 042
     Dates: start: 20120507
  2. XANAX [Concomitant]
     Active Substance: ALPRAZOLAM
     Indication: ANXIETY
     Route: 065
     Dates: start: 20120807
  3. FORLAX (FRANCE) [Concomitant]
     Indication: CONSTIPATION
     Route: 065
     Dates: start: 20120516, end: 201205
  4. ONARTUZUMAB. [Suspect]
     Active Substance: ONARTUZUMAB
     Indication: BREAST CANCER METASTATIC
     Dosage: LAST DOSE PRIOR TO SAE: 13/AUG/2012
     Route: 042
     Dates: start: 20120507
  5. DOLIPRANE [Concomitant]
     Active Substance: ACETAMINOPHEN
     Indication: PAIN
     Route: 065
  6. MAGNE B6 [Concomitant]
     Active Substance: MAGNESIUM\PYRIDOXINE
     Indication: NEUROPATHY PERIPHERAL
     Route: 065
     Dates: start: 20120521
  7. CORTANCYL [Concomitant]
     Active Substance: PREDNISONE
     Indication: DERMATOMYOSITIS
     Route: 065
     Dates: start: 20120710
  8. BEVACIZUMAB. [Suspect]
     Active Substance: BEVACIZUMAB
     Indication: BREAST CANCER METASTATIC
     Dosage: LAST DOSE PRIOR TO SAE: 13/AUG/2012
     Route: 042
     Dates: start: 20120507

REACTIONS (1)
  - Dural arteriovenous fistula [Fatal]

NARRATIVE: CASE EVENT DATE: 20121217
